FAERS Safety Report 16126509 (Version 1)
Quarter: 2019Q1

REPORT INFORMATION
  Report Type: Report from Study
  Country: US (occurrence: US)
  Receive Date: 20190328
  Receipt Date: 20190328
  Transmission Date: 20190418
  Serious: Yes (Hospitalization)
  Sender: FDA-Public Use
  Company Number: US-ROCHE-2287758

PATIENT
  Age: 57 Year
  Sex: Female
  Weight: 98.6 kg

DRUGS (2)
  1. COBIMETINIB. [Suspect]
     Active Substance: COBIMETINIB
     Indication: CHOLANGIOCARCINOMA
     Dosage: MOST RECENT DOSE (TOTAL DOSE ADMINISTERED: 300 MG) ON 24/NOV/2018
     Route: 048
     Dates: start: 20180605
  2. ATEZOLIZUMAB. [Suspect]
     Active Substance: ATEZOLIZUMAB
     Indication: CHOLANGIOCARCINOMA
     Dosage: MOST RECENT DOSE ON 20/NOV/2018
     Route: 042
     Dates: start: 20180605

REACTIONS (1)
  - Urinary tract infection [Recovered/Resolved]

NARRATIVE: CASE EVENT DATE: 20181125
